FAERS Safety Report 14225267 (Version 1)
Quarter: 2017Q4

REPORT INFORMATION
  Report Type: Spontaneous
  Country: US (occurrence: None)
  Receive Date: 20171122
  Receipt Date: 20171122
  Transmission Date: 20180321
  Serious: No
  Sender: FDA-Public Use
  Company Number: None

PATIENT

DRUGS (2)
  1. NIVOLUMAB [Suspect]
     Active Substance: NIVOLUMAB
     Indication: SYNCOPE
  2. IPILIMUMAB [Suspect]
     Active Substance: IPILIMUMAB
     Indication: SYNCOPE

REACTIONS (6)
  - Syncope [None]
  - Urinary tract infection [None]
  - Hypovolaemia [None]
  - Blood pressure decreased [None]
  - Bacteriuria [None]
  - Hypophagia [None]
